FAERS Safety Report 25463496 (Version 1)
Quarter: 2025Q2

REPORT INFORMATION
  Report Type: Report from Study
  Country: US (occurrence: US)
  Receive Date: 20250620
  Receipt Date: 20250620
  Transmission Date: 20250717
  Serious: Yes (Hospitalization)
  Sender: TG THERAPEUTICS
  Company Number: US-TG THERAPEUTICS INC.-TGT005341

PATIENT

DRUGS (2)
  1. UBLITUXIMAB [Suspect]
     Active Substance: UBLITUXIMAB
     Indication: Multiple sclerosis
     Route: 042
     Dates: start: 20240623, end: 20240623
  2. UBLITUXIMAB [Suspect]
     Active Substance: UBLITUXIMAB
     Route: 042
     Dates: start: 20250106, end: 20250106

REACTIONS (15)
  - Electric shock sensation [Unknown]
  - Gait disturbance [Unknown]
  - Pain in extremity [Unknown]
  - Feeling abnormal [Unknown]
  - Malaise [Unknown]
  - Bradyphrenia [Unknown]
  - Brain fog [Unknown]
  - Confusional state [Unknown]
  - Disturbance in attention [Unknown]
  - Aphasia [Unknown]
  - Memory impairment [Unknown]
  - Swollen tongue [Unknown]
  - Stomatitis [Unknown]
  - Glossodynia [Unknown]
  - Fatigue [Unknown]

NARRATIVE: CASE EVENT DATE: 20250101
